FAERS Safety Report 5205280-0 (Version None)
Quarter: 2007Q1

REPORT INFORMATION
  Report Type: 
  Country: None (occurrence: None)
  Receive Date: 20070110
  Receipt Date: 20061229
  Transmission Date: 20070707
  Serious: Yes (Other)
  Sender: FDA-Public Use
  Company Number: US-PFIZER INC-2007001857

PATIENT
  Sex: Female
  Weight: 59.4 kg

DRUGS (10)
  1. CHANTIX [Suspect]
     Indication: EX-SMOKER
     Dosage: FREQ:DAILY
  2. WARFARIN SODIUM [Suspect]
  3. ALL OTHER THERAPEUTIC PRODUCTS [Concomitant]
  4. CELEBREX [Concomitant]
  5. CLARINEX [Concomitant]
  6. ARICEPT [Concomitant]
  7. NEXIUM [Concomitant]
  8. PROVIGIL [Concomitant]
  9. MIACALCIN [Concomitant]
  10. WELLBUTRIN [Concomitant]

REACTIONS (6)
  - AGGRESSION [None]
  - ANGER [None]
  - ANTICOAGULATION DRUG LEVEL BELOW THERAPEUTIC [None]
  - MOOD ALTERED [None]
  - OBSESSIVE-COMPULSIVE DISORDER [None]
  - PSYCHOMOTOR HYPERACTIVITY [None]
